FAERS Safety Report 7000995-6 (Version None)
Quarter: 2010Q3

REPORT INFORMATION
  Report Type: 
  Country: None (occurrence: None)
  Receive Date: 20100920
  Receipt Date: 20091020
  Transmission Date: 20110219
  Serious: No
  Sender: FDA-Public Use
  Company Number: US-ASTRAZENECA-2009SE21285

PATIENT
  Age: 30 Year
  Sex: Male
  Weight: 83.9 kg

DRUGS (5)
  1. SEROQUEL [Suspect]
     Indication: ALCOHOLISM
     Route: 048
     Dates: start: 20090930
  2. SEROQUEL [Suspect]
     Indication: MAJOR DEPRESSION
     Route: 048
     Dates: start: 20090930
  3. SEROQUEL [Suspect]
     Route: 048
  4. SEROQUEL [Suspect]
     Route: 048
  5. LEXAPRO [Concomitant]

REACTIONS (1)
  - FALSE POSITIVE INVESTIGATION RESULT [None]
